FAERS Safety Report 7826274-2 (Version None)
Quarter: 2011Q4

REPORT INFORMATION
  Report Type: 
  Country: None (occurrence: None)
  Receive Date: 20111020
  Receipt Date: 20111014
  Transmission Date: 20120403
  Serious: No
  Sender: FDA-Public Use
  Company Number: US-BIOGENIDEC-2011BI034367

PATIENT
  Age: 35 Year
  Sex: Female

DRUGS (3)
  1. AVONEX [Concomitant]
     Route: 030
     Dates: start: 20060801
  2. TYSABRI [Suspect]
     Indication: MULTIPLE SCLEROSIS
     Route: 042
     Dates: start: 20090925
  3. AVONEX [Concomitant]
     Indication: MULTIPLE SCLEROSIS
     Route: 030

REACTIONS (3)
  - MUSCULOSKELETAL STIFFNESS [None]
  - MUSCLE SPASMS [None]
  - MUSCULAR WEAKNESS [None]
